FAERS Safety Report 4413621-7 (Version None)
Quarter: 2004Q2

REPORT INFORMATION
  Report Type: 
  Country: None (occurrence: None)
  Receive Date: 20040630
  Receipt Date: 20040511
  Transmission Date: 20050107
  Serious: No
  Sender: FDA-Public Use
  Company Number: 04P-163-0260311-00

PATIENT
  Age: 54 Year
  Sex: Female
  Weight: 78.9259 kg

DRUGS (6)
  1. HUMIRA [Suspect]
     Indication: RHEUMATOID ARTHRITIS
     Dosage: 40 MG, 1 IN 2 WK, SUBCUTANEOUS
     Route: 058
     Dates: start: 20030801
  2. METHOTREXATE [Concomitant]
  3. PREDNISONE TAB [Concomitant]
  4. TELMISARTAN [Concomitant]
  5. LANSOPRAZOLE [Concomitant]
  6. NABUMETONE [Concomitant]

REACTIONS (1)
  - PARAESTHESIA [None]
